FAERS Safety Report 13050261 (Version 1)
Quarter: 2016Q4

REPORT INFORMATION
  Report Type: Spontaneous
  Country: IT (occurrence: IT)
  Receive Date: 20161221
  Receipt Date: 20161221
  Transmission Date: 20170207
  Serious: Yes (Hospitalization)
  Sender: FDA-Public Use
  Company Number: IT-AUROBINDO-AUR-APL-2016-15453

PATIENT
  Age: 53 Year
  Sex: Female

DRUGS (2)
  1. PIPERACILLIN+TAZOBACTAM INJECTION [Suspect]
     Active Substance: PIPERACILLIN SODIUM\TAZOBACTAM SODIUM
     Indication: CHOLECYSTITIS ACUTE
     Dosage: 13.5 MG, UNK
     Route: 042
     Dates: start: 20160617, end: 20160620
  2. OMEPRAZOLE. [Suspect]
     Active Substance: OMEPRAZOLE
     Indication: PRODUCT USED FOR UNKNOWN INDICATION
     Dosage: 40 MG, DAILY
     Route: 042

REACTIONS (2)
  - Renal failure [Unknown]
  - Tubulointerstitial nephritis [Unknown]

NARRATIVE: CASE EVENT DATE: 20160620
